FAERS Safety Report 21372226 (Version 5)
Quarter: 2023Q1

REPORT INFORMATION
  Report Type: Report from Study
  Country: IT (occurrence: IT)
  Receive Date: 20220924
  Receipt Date: 20230215
  Transmission Date: 20230418
  Serious: Yes (Other)
  Sender: FDA-Public Use
  Company Number: IT-CELLTRION INC.-2022IT015209

PATIENT

DRUGS (50)
  1. TRASTUZUMAB [Suspect]
     Active Substance: TRASTUZUMAB
     Indication: HER2 positive breast cancer
     Dosage: 8 MILLIGRAM/KILOGRAM, EVERY 3 WEEKS
     Route: 042
     Dates: start: 20170418, end: 20170418
  2. TRASTUZUMAB [Suspect]
     Active Substance: TRASTUZUMAB
     Dosage: 490 MILLIGRAM, EVERY 3 WEEK
     Route: 042
     Dates: start: 20221121, end: 20230109
  3. TRASTUZUMAB [Suspect]
     Active Substance: TRASTUZUMAB
     Dosage: 6 MILLIGRAM/KILOGRAM, EVERY 3 WEEKS
     Route: 042
     Dates: start: 20170509, end: 20200803
  4. DOCETAXEL [Suspect]
     Active Substance: DOCETAXEL
     Indication: HER2 positive breast cancer
     Dosage: 60 MILLIGRAM, EVERY 3 WEEKS
     Route: 042
     Dates: start: 20170418, end: 20170418
  5. DOCETAXEL [Suspect]
     Active Substance: DOCETAXEL
     Dosage: 75 MILLIGRAM, EVERY 3 WEEKS
     Route: 042
     Dates: start: 20170509, end: 20170928
  6. EXEMESTANE [Suspect]
     Active Substance: EXEMESTANE
     Indication: HER2 positive breast cancer
     Dosage: 25 MILLIGRAM, QD
     Route: 048
     Dates: start: 20171019, end: 20200803
  7. FAM-TRASTUZUMAB DERUXTECAN-NXKI [Suspect]
     Active Substance: FAM-TRASTUZUMAB DERUXTECAN-NXKI
     Indication: HER2 positive breast cancer
     Dosage: 350 MILLIGRAM, EVERY 3 WEEK
     Route: 042
     Dates: start: 20211020, end: 20220316
  8. FAM-TRASTUZUMAB DERUXTECAN-NXKI [Suspect]
     Active Substance: FAM-TRASTUZUMAB DERUXTECAN-NXKI
     Dosage: 198 MG, EVERY 3 WEEK
     Route: 042
     Dates: start: 20220316, end: 20221121
  9. LEUPROLIDE ACETATE [Suspect]
     Active Substance: LEUPROLIDE ACETATE
     Indication: HER2 positive breast cancer
     Dosage: 3.75 MG, MONTHLY
     Route: 058
     Dates: start: 20171019
  10. ADO-TRASTUZUMAB EMTANSINE [Suspect]
     Active Substance: ADO-TRASTUZUMAB EMTANSINE
     Indication: HER2 positive breast cancer
     Dosage: 3.6 MILLIGRAM/KILOGRAM, EVERY 3 WEEKS, (PHARMACEUTICAL DOSAGE FORM: INFUSION, SOLUTION)
     Route: 042
     Dates: start: 20200803, end: 20210927
  11. PERTUZUMAB [Suspect]
     Active Substance: PERTUZUMAB
     Indication: HER2 positive breast cancer
     Dosage: 840 MILLIGRAM, EVERY 3 WEEK
     Route: 042
     Dates: start: 20170418, end: 20170418
  12. PERTUZUMAB [Suspect]
     Active Substance: PERTUZUMAB
     Dosage: 420 MILLIGRAM, EVERY 3 WEEK
     Route: 042
     Dates: start: 20170509, end: 20200803
  13. BROMELAINS [Concomitant]
     Active Substance: BROMELAINS
     Dosage: UNK
     Dates: start: 20180314
  14. KEFIBIOS [Concomitant]
     Dosage: UNK
     Dates: start: 20170412, end: 20180820
  15. DEXAMETHASONE [Concomitant]
     Active Substance: DEXAMETHASONE
     Dosage: UNK
     Dates: start: 20170718
  16. DEXAMETHASONE [Concomitant]
     Active Substance: DEXAMETHASONE
     Dosage: UNK
     Dates: start: 20170817
  17. IMIDAZYL [Concomitant]
     Dosage: UNK
     Dates: start: 20170508
  18. FILGRASTIM [Concomitant]
     Active Substance: FILGRASTIM
     Dosage: UNK
     Dates: start: 20170511
  19. FILGRASTIM [Concomitant]
     Active Substance: FILGRASTIM
     Dosage: UNK
     Dates: start: 20170601
  20. TOBRADEX [Concomitant]
     Active Substance: DEXAMETHASONE\TOBRAMYCIN
     Dosage: UNK
     Dates: start: 20180314
  21. FUROSEMIDE [Concomitant]
     Active Substance: FUROSEMIDE
     Dosage: UNK
     Dates: start: 20170414
  22. FUROSEMIDE [Concomitant]
     Active Substance: FUROSEMIDE
     Dosage: UNK
     Dates: start: 20170525
  23. FUROSEMIDE [Concomitant]
     Active Substance: FUROSEMIDE
     Dosage: UNK
  24. ESCITALOPRAM [Concomitant]
     Active Substance: ESCITALOPRAM OXALATE
     Dosage: UNK
     Dates: start: 20171129
  25. MICARDIS [Concomitant]
     Active Substance: TELMISARTAN
     Dosage: UNK
     Dates: start: 20170529
  26. ALLOPURINOL [Concomitant]
     Active Substance: ALLOPURINOL
     Dosage: UNK
     Dates: start: 20170412
  27. ZOLEDRONIC ACID [Concomitant]
     Active Substance: ZOLEDRONIC ACID
     Dosage: UNK
     Dates: start: 20181019
  28. ENANTONE LP [Concomitant]
     Active Substance: LEUPROLIDE ACETATE
     Dosage: UNK
     Dates: start: 20171018
  29. EXEMESTANE [Concomitant]
     Active Substance: EXEMESTANE
     Dosage: UNK
     Dates: start: 20171018
  30. NETTACIN [Concomitant]
     Dosage: UNK
     Dates: start: 20180912
  31. CHLORPHENIRAMINE [Concomitant]
     Active Substance: CHLORPHENIRAMINE
     Dosage: UNK
     Dates: start: 20170718
  32. ZOMETA [Concomitant]
     Active Substance: ZOLEDRONIC ACID
     Dosage: UNK
     Dates: start: 20170414
  33. ZOMETA [Concomitant]
     Active Substance: ZOLEDRONIC ACID
     Dosage: UNK
     Dates: start: 20170718
  34. PREDNISONE [Concomitant]
     Active Substance: PREDNISONE
     Dosage: UNK
     Dates: start: 20170717
  35. LEVOSULPIRIDE [Concomitant]
     Active Substance: LEVOSULPIRIDE
     Dosage: UNK
     Dates: start: 20170718
  36. MOVICOL [Concomitant]
     Active Substance: POLYETHYLENE GLYCOL 3350\POTASSIUM CHLORIDE\SODIUM BICARBONATE\SODIUM CHLORIDE
     Dosage: UNK
  37. AMITRIPTYLINE HYDROCHLORIDE [Concomitant]
     Active Substance: AMITRIPTYLINE HYDROCHLORIDE
     Dosage: UNK
  38. OXYCODONE [Concomitant]
     Active Substance: OXYCODONE
     Dosage: UNK
  39. Varcodes [Concomitant]
     Dosage: UNK
  40. LEVETIRACETAM [Concomitant]
     Active Substance: LEVETIRACETAM
     Dosage: UNK
  41. ARIXTRA [Concomitant]
     Active Substance: FONDAPARINUX SODIUM
     Dosage: UNK
  42. CYMBALTA [Concomitant]
     Active Substance: DULOXETINE HYDROCHLORIDE
     Dosage: UNK
  43. KCL [Concomitant]
     Active Substance: POTASSIUM CHLORIDE
     Dosage: UNK
  44. DEXAMETHASONE [Concomitant]
     Active Substance: DEXAMETHASONE
     Dosage: UNK
  45. APREPITANT [Concomitant]
     Active Substance: APREPITANT
     Dosage: UNK
  46. FOLIC ACID [Concomitant]
     Active Substance: FOLIC ACID
     Dosage: UNK
  47. LANSOPRAZOLE [Concomitant]
     Active Substance: LANSOPRAZOLE
     Dosage: UNK
  48. ALDACTONE [Concomitant]
     Active Substance: SPIRONOLACTONE
     Dosage: UNK
  49. DIETARY SUPPLEMENT\HERBALS\MILK THISTLE [Concomitant]
     Active Substance: DIETARY SUPPLEMENT\HERBALS\MILK THISTLE
     Dosage: UNK
  50. CYANOCOBALAMIN\PYRIDOXINE\THIAMINE [Concomitant]
     Active Substance: CYANOCOBALAMIN\PYRIDOXINE\THIAMINE
     Dosage: UNK

REACTIONS (2)
  - Interstitial lung disease [Recovered/Resolved]
  - Eastern Cooperative Oncology Group performance status worsened [Not Recovered/Not Resolved]

NARRATIVE: CASE EVENT DATE: 20220616
